FAERS Safety Report 6901746-3 (Version None)
Quarter: 2010Q3

REPORT INFORMATION
  Report Type: 
  Country: None (occurrence: None)
  Receive Date: 20100803
  Receipt Date: 20080312
  Transmission Date: 20110219
  Serious: Yes (Other)
  Sender: FDA-Public Use
  Company Number: US-PFIZER INC-2008020103

PATIENT
  Sex: Male
  Weight: 71.363 kg

DRUGS (3)
  1. LYRICA [Suspect]
     Indication: BURNING SENSATION
     Dates: start: 20060101, end: 20070101
  2. LYRICA [Suspect]
     Indication: PARAESTHESIA
  3. LYRICA [Suspect]
     Indication: PAIN

REACTIONS (2)
  - DRUG INEFFECTIVE [None]
  - MUSCLE SPASMS [None]
